FAERS Safety Report 6159853-1 (Version None)
Quarter: 2009Q2

REPORT INFORMATION
  Report Type: 
  Country: None (occurrence: None)
  Receive Date: 20090420
  Receipt Date: 20090414
  Transmission Date: 20091009
  Serious: Yes (Hospitalization)
  Sender: FDA-Public Use
  Company Number: FR-WYE-G03499209

PATIENT
  Sex: Male
  Weight: 19 kg

DRUGS (6)
  1. ADVIL [Suspect]
     Indication: PYREXIA
     Dosage: UNKNOWN
     Route: 048
     Dates: start: 20090316, end: 20090320
  2. ADVIL [Suspect]
     Indication: TOOTHACHE
  3. ADVIL [Suspect]
     Indication: CHILLS
  4. DOLIPRANE [Concomitant]
     Indication: PYREXIA
     Dosage: UNKNOWN
     Route: 048
     Dates: start: 20090316, end: 20090320
  5. DOLIPRANE [Concomitant]
     Indication: TOOTHACHE
  6. DOLIPRANE [Concomitant]
     Indication: CHILLS

REACTIONS (3)
  - CELLULITIS [None]
  - CONDITION AGGRAVATED [None]
  - TOOTH INFECTION [None]
